FAERS Safety Report 7183061-9 (Version None)
Quarter: 2010Q4

REPORT INFORMATION
  Report Type: 
  Country: None (occurrence: None)
  Receive Date: 20101222
  Receipt Date: 20101214
  Transmission Date: 20110411
  Serious: No
  Sender: FDA-Public Use
  Company Number: US-JNJFOC-20101107690

PATIENT
  Sex: Male
  Weight: 88.45 kg

DRUGS (2)
  1. DURAGESIC-50 [Suspect]
     Indication: PAIN
     Route: 062
  2. DURAGESIC-50 [Suspect]
     Route: 062

REACTIONS (4)
  - CONSTIPATION [None]
  - MEMORY IMPAIRMENT [None]
  - PRODUCT ADHESION ISSUE [None]
  - WRONG TECHNIQUE IN DRUG USAGE PROCESS [None]
